FAERS Safety Report 18005140 (Version 1)
Quarter: 2020Q3

REPORT INFORMATION
  Report Type: Spontaneous
  Country: JP (occurrence: JP)
  Receive Date: 20200710
  Receipt Date: 20200710
  Transmission Date: 20201103
  Serious: Yes (Other)
  Sender: FDA-Public Use
  Company Number: JP-ACCORD-188980

PATIENT
  Age: 15 Year
  Sex: Male
  Weight: 58.1 kg

DRUGS (1)
  1. LISINOPRIL. [Suspect]
     Active Substance: LISINOPRIL
     Indication: ALPORT^S SYNDROME
     Route: 048

REACTIONS (1)
  - Post streptococcal glomerulonephritis [Unknown]
